FAERS Safety Report 22007014 (Version 1)
Quarter: 2023Q1

REPORT INFORMATION
  Report Type: Spontaneous
  Country: US (occurrence: US)
  Receive Date: 20230217
  Receipt Date: 20230217
  Transmission Date: 20230418
  Serious: No
  Sender: FDA-Public Use
  Company Number: US-MYLANLABS-2023M1014675

PATIENT
  Age: 17 Year
  Sex: Female
  Weight: 44.45 kg

DRUGS (1)
  1. XULANE [Suspect]
     Active Substance: ETHINYL ESTRADIOL\NORELGESTROMIN
     Indication: Endometriosis
     Dosage: 150/35 MICROGRAM, QD
     Route: 062
     Dates: start: 20230129

REACTIONS (2)
  - Product packaging quantity issue [Unknown]
  - Product dose omission issue [Unknown]

NARRATIVE: CASE EVENT DATE: 20230205
